FAERS Safety Report 6837255-X (Version None)
Quarter: 2010Q3

REPORT INFORMATION
  Report Type: 
  Country: None (occurrence: None)
  Receive Date: 20100713
  Receipt Date: 20070508
  Transmission Date: 20110219
  Serious: No
  Sender: FDA-Public Use
  Company Number: US-PFIZER INC-2007037811

PATIENT
  Sex: Female
  Weight: 57 kg

DRUGS (10)
  1. CHANTIX [Suspect]
     Indication: SMOKING CESSATION THERAPY
     Dates: start: 20070507
  2. ESTRADIOL [Concomitant]
     Indication: MENOPAUSE
  3. ACETYLSALICYLIC ACID [Concomitant]
  4. COMBIVENT [Concomitant]
     Route: 055
  5. ADVAIR DISKUS 100/50 [Concomitant]
     Route: 055
  6. NEURONTIN [Concomitant]
  7. VICODIN [Concomitant]
  8. REMERON [Concomitant]
     Indication: INSOMNIA
  9. MEGESTROL ACETATE [Concomitant]
  10. SEROQUEL [Concomitant]
     Indication: INSOMNIA

REACTIONS (1)
  - NIGHTMARE [None]
